FAERS Safety Report 8046229-5 (Version None)
Quarter: 2012Q1

REPORT INFORMATION
  Report Type: 
  Country: None (occurrence: None)
  Receive Date: 20120113
  Receipt Date: 20120109
  Transmission Date: 20120608
  Serious: Yes (Hospitalization)
  Sender: FDA-Public Use
  Company Number: FR-PFIZER INC-HQWYE441613APR04

PATIENT
  Age: 74 Year
  Sex: Female

DRUGS (17)
  1. LASIX [Concomitant]
     Dosage: 500 MG,  4X/WEEK
     Route: 048
     Dates: start: 20020919
  2. CORDARONE [Interacting]
     Dosage: 200.0 MG, 4X/WK
     Route: 048
     Dates: start: 20020917
  3. ROXITHROMYCIN [Interacting]
     Dosage: 300 MG, 1X/DAY
     Route: 048
     Dates: start: 20021213, end: 20021216
  4. ULTRA-LEVURE [Concomitant]
     Dosage: 300 MG, 1X/DAY
     Route: 048
     Dates: start: 20021213, end: 20021216
  5. TRAMADOL HCL [Concomitant]
     Dosage: 200 MG, 1X/DAY
     Route: 048
     Dates: start: 20020923, end: 20021216
  6. LEVOTHYROXINE SODIUM [Interacting]
     Dosage: 100 UG, 1X/DAY
     Route: 048
     Dates: start: 20020917
  7. AMITRIPTYLINE HCL [Concomitant]
     Dosage: 50 MG, 1X/DAY
     Route: 048
     Dates: start: 20020917
  8. NOCTAMID-1 [Concomitant]
     Dosage: 1 MG, 1X/DAY
     Route: 048
     Dates: start: 20020917
  9. MUCOMYST [Suspect]
     Dosage: UNK
     Route: 048
     Dates: start: 20021212, end: 20021216
  10. PREVISCAN [Interacting]
     Dosage: 10.0 MG, 1X/DAY
     Route: 048
     Dates: start: 20021207, end: 20021215
  11. OMEPRAZOLE [Concomitant]
     Dosage: 20 MG, 1X/DAY
     Route: 048
     Dates: start: 20020917
  12. VOLTAREN [Interacting]
     Dosage: 100.0 MG, 1X/DAY
     Route: 048
     Dates: start: 20021130, end: 20021216
  13. PREVISCAN [Interacting]
     Dosage: 5.0 MG, 1X/DAY
     Route: 048
     Dates: start: 20021216, end: 20021216
  14. FLUCONAZOLE [Concomitant]
     Dosage: 50 MG, ONCE
     Route: 048
     Dates: start: 20021216, end: 20021216
  15. KAYEXALATE [Concomitant]
     Dosage: 15 G, 4X/WEEK
     Route: 048
     Dates: start: 20021207, end: 20021216
  16. RAMIPRIL [Concomitant]
     Dosage: 1.25 MG, 4X/WEEK
     Route: 048
     Dates: start: 20020917
  17. ATORVASTATIN CALCIUM [Interacting]
     Dosage: 2 DF, 1X/DAY
     Route: 048
     Dates: start: 20020917

REACTIONS (2)
  - HAEMORRHAGE [None]
  - DRUG INTERACTION [None]
